FAERS Safety Report 7905126-3 (Version None)
Quarter: 2011Q4

REPORT INFORMATION
  Report Type: 
  Country: None (occurrence: None)
  Receive Date: 20111109
  Receipt Date: 20111101
  Transmission Date: 20120403
  Serious: Yes (Other)
  Sender: FDA-Public Use
  Company Number: PHHY2011IT97004

PATIENT
  Age: 50 Year
  Sex: Male

DRUGS (1)
  1. CARBOPLATIN [Suspect]
     Indication: LUNG ADENOCARCINOMA

REACTIONS (3)
  - RASH [None]
  - CHEST PAIN [None]
  - KOUNIS SYNDROME [None]
